FAERS Safety Report 15188070 (Version 2)
Quarter: 2018Q3

REPORT INFORMATION
  Report Type: Report from Study
  Country: US (occurrence: US)
  Receive Date: 20180724
  Receipt Date: 20180730
  Transmission Date: 20181010
  Serious: Yes (Death, Other)
  Sender: FDA-Public Use
  Company Number: US-BRISTOL-MYERS SQUIBB COMPANY-BMS-2018-069029

PATIENT
  Age: 70 Year
  Sex: Female
  Weight: 67.5 kg

DRUGS (2)
  1. AZACITIDINE. [Suspect]
     Active Substance: AZACITIDINE
     Indication: BONE CANCER
     Dosage: 910 MG, UNK
     Route: 065
     Dates: start: 20180625, end: 20180703
  2. NIVOLUMAB [Suspect]
     Active Substance: NIVOLUMAB
     Indication: BONE CANCER
     Dosage: 199 MG, UNK
     Route: 065
     Dates: start: 20180625, end: 20180625

REACTIONS (1)
  - Sudden death [Fatal]

NARRATIVE: CASE EVENT DATE: 20180706
